FAERS Safety Report 20751394 (Version 1)
Quarter: 2022Q2

REPORT INFORMATION
  Report Type: Report from Study
  Country: US (occurrence: US)
  Receive Date: 20220426
  Receipt Date: 20220426
  Transmission Date: 20220721
  Serious: No
  Sender: FDA-Public Use
  Company Number: US-Ipsen Biopharmaceuticals, Inc.-2022-11224

PATIENT
  Age: 58 Year
  Sex: Female

DRUGS (1)
  1. SOMATULINE DEPOT [Suspect]
     Active Substance: LANREOTIDE ACETATE
     Indication: Small intestine carcinoma
     Route: 058
     Dates: start: 2019

REACTIONS (6)
  - Pain [Recovering/Resolving]
  - Liver disorder [Recovering/Resolving]
  - Urine analysis abnormal [Recovering/Resolving]
  - Injection site nodule [Recovering/Resolving]
  - Depressed mood [Recovering/Resolving]
  - Injection site pain [Recovered/Resolved]

NARRATIVE: CASE EVENT DATE: 20220415
